FAERS Safety Report 6834095-2 (Version None)
Quarter: 2010Q3

REPORT INFORMATION
  Report Type: 
  Country: None (occurrence: None)
  Receive Date: 20100712
  Receipt Date: 20070410
  Transmission Date: 20110219
  Serious: No
  Sender: FDA-Public Use
  Company Number: US-PFIZER INC-2007030318

PATIENT
  Sex: Male
  Weight: 88.45 kg

DRUGS (3)
  1. CHANTIX [Suspect]
     Indication: SMOKING CESSATION THERAPY
     Dates: start: 20070301
  2. BENAZEPRIL HYDROCHLORIDE [Concomitant]
     Indication: PREHYPERTENSION
  3. LOVAZA [Concomitant]

REACTIONS (8)
  - ABNORMAL DREAMS [None]
  - DEPRESSION [None]
  - DISTURBANCE IN ATTENTION [None]
  - DRUG WITHDRAWAL SYNDROME [None]
  - MENTAL IMPAIRMENT [None]
  - MIDDLE INSOMNIA [None]
  - NIGHT SWEATS [None]
  - PANIC ATTACK [None]
